FAERS Safety Report 9115314 (Version 1)
Quarter: 2013Q1

REPORT INFORMATION
  Report Type: Spontaneous
  Country: US (occurrence: None)
  Receive Date: 20130221
  Receipt Date: 20130221
  Transmission Date: 20140127
  Serious: No
  Sender: FDA-Public Use
  Company Number: None

PATIENT
  Age: 60 Year
  Sex: Female
  Weight: 56.25 kg

DRUGS (2)
  1. METOPROLOL [Suspect]
     Indication: PALPITATIONS
     Dosage: 1 TABLET DAILY ORAL
     Route: 048
     Dates: start: 20120124, end: 20121227
  2. METOPROLOL [Suspect]
     Indication: PALPITATIONS
     Dosage: 1 TABLET DAILY ORAL
     Route: 048
     Dates: start: 20121228, end: 20130117

REACTIONS (5)
  - Diarrhoea [None]
  - Weight decreased [None]
  - Malaise [None]
  - Heart rate decreased [None]
  - Asthenia [None]
